FAERS Safety Report 5269329-1 (Version None)
Quarter: 2007Q1

REPORT INFORMATION
  Report Type: 
  Country: None (occurrence: None)
  Receive Date: 20070319
  Receipt Date: 20070307
  Transmission Date: 20070707
  Serious: Yes (Other)
  Sender: FDA-Public Use
  Company Number: PFIZER INC-2007017640

PATIENT
  Age: 31 Year
  Sex: Female

DRUGS (17)
  1. LINEZOLID [Suspect]
     Route: 042
  2. LINEZOLID [Interacting]
     Route: 042
  3. RIFAMPICIN [Interacting]
     Route: 042
  4. RIFAMPICIN [Interacting]
     Route: 042
  5. XIGRIS [Concomitant]
     Route: 042
  6. NOREPINEPHRINE BITARTRATE [Concomitant]
     Route: 042
  7. VASOPRESSIN INJECTION [Concomitant]
     Route: 042
  8. PIPERACILLIN AND TAZOBACTAM [Concomitant]
  9. VANCOMYCIN [Concomitant]
  10. CLINDAMYCIN [Concomitant]
  11. CASPOFUNGIN [Concomitant]
     Indication: SYSTEMIC CANDIDA
  12. FLUCONAZOLE [Concomitant]
     Indication: SYSTEMIC CANDIDA
  13. MEROPENEM [Concomitant]
     Indication: ESCHERICHIA BACTERAEMIA
  14. LEVOFLOXACIN [Concomitant]
     Indication: ESCHERICHIA BACTERAEMIA
  15. OXYCODONE [Concomitant]
     Indication: PAIN
  16. SERTRALINE [Concomitant]
     Indication: DEPRESSION
  17. HYDROXYCHLOROQUINE SULFATE [Concomitant]
     Indication: SYSTEMIC LUPUS ERYTHEMATOSUS

REACTIONS (2)
  - DRUG INTERACTION [None]
  - DRUG LEVEL DECREASED [None]
